FAERS Safety Report 11598994 (Version 2)
Quarter: 2015Q4

REPORT INFORMATION
  Report Type: Spontaneous
  Country: BR (occurrence: BR)
  Receive Date: 20151006
  Receipt Date: 20151204
  Transmission Date: 20160304
  Serious: No
  Sender: FDA-Public Use
  Company Number: BR-GLAXOSMITHKLINE-BR2015GSK142020

PATIENT
  Age: 15 Year
  Sex: Female
  Weight: 70 kg

DRUGS (1)
  1. NARAMIG [Suspect]
     Active Substance: NARATRIPTAN HYDROCHLORIDE
     Indication: MIGRAINE
     Dosage: 1 TABLET, QD
     Route: 048
     Dates: start: 20151001

REACTIONS (9)
  - Acne [Not Recovered/Not Resolved]
  - Oropharyngeal pain [Not Recovered/Not Resolved]
  - Nasal inflammation [Not Recovered/Not Resolved]
  - Swelling [Not Recovered/Not Resolved]
  - Neck pain [Unknown]
  - Headache [Not Recovered/Not Resolved]
  - Laryngospasm [Unknown]
  - Hypoaesthesia oral [Not Recovered/Not Resolved]
  - Erythema [Not Recovered/Not Resolved]

NARRATIVE: CASE EVENT DATE: 20151001
